FAERS Safety Report 6770867-0 (Version None)
Quarter: 2010Q2

REPORT INFORMATION
  Report Type: 
  Country: None (occurrence: None)
  Receive Date: 20100614
  Receipt Date: 20100609
  Transmission Date: 20101027
  Serious: Yes (Hospitalization)
  Sender: FDA-Public Use
  Company Number: 2010SP032202

PATIENT
  Age: 44 Year
  Sex: Female

DRUGS (4)
  1. IMPLANON [Suspect]
     Indication: DRUG USE FOR UNKNOWN INDICATION
     Dosage: 1 DF; SC
     Route: 058
     Dates: start: 20060516, end: 20090709
  2. GLEEVEC [Suspect]
     Indication: CHRONIC MYELOID LEUKAEMIA
     Dosage: 400 MG;QD;PO
     Route: 048
     Dates: start: 20051222, end: 20091117
  3. PEGASYS [Suspect]
     Indication: CHRONIC MYELOID LEUKAEMIA
     Dosage: ;SC
     Route: 058
     Dates: start: 20051025
  4. ACETAMINOPHEN [Concomitant]

REACTIONS (4)
  - BREAST CANCER [None]
  - CYTOLYTIC HEPATITIS [None]
  - LUPUS-LIKE SYNDROME [None]
  - PHOTOSENSITIVITY REACTION [None]
